FAERS Safety Report 5221432-8 (Version None)
Quarter: 2007Q1

REPORT INFORMATION
  Report Type: 
  Country: None (occurrence: None)
  Receive Date: 20070126
  Receipt Date: 20070116
  Transmission Date: 20070707
  Serious: Yes (Other)
  Sender: FDA-Public Use
  Company Number: CA-PFIZER INC-2007004740

PATIENT
  Age: 38 Year
  Sex: Female

DRUGS (1)
  1. HEMABATE [Suspect]
     Indication: POSTPARTUM HAEMORRHAGE
     Route: 042

REACTIONS (5)
  - BLOOD PRESSURE INCREASED [None]
  - HEART RATE INCREASED [None]
  - HYPERHIDROSIS [None]
  - INCORRECT ROUTE OF DRUG ADMINISTRATION [None]
  - NAUSEA [None]
